FAERS Safety Report 25480499 (Version 5)
Quarter: 2025Q3

REPORT INFORMATION
  Report Type: Spontaneous
  Country: US (occurrence: US)
  Receive Date: 20250625
  Receipt Date: 20250814
  Transmission Date: 20251021
  Serious: Yes (Other)
  Sender: PFIZER
  Company Number: US-PFIZER INC-202500108169

PATIENT
  Age: 15 Year
  Sex: Male
  Weight: 43 kg

DRUGS (3)
  1. GENOTROPIN [Suspect]
     Active Substance: SOMATROPIN
     Indication: Hypopituitarism
     Route: 058
  2. GENOTROPIN [Suspect]
     Active Substance: SOMATROPIN
     Indication: Growth hormone deficiency
     Dates: start: 20250616
  3. GENOTROPIN [Suspect]
     Active Substance: SOMATROPIN
     Indication: Growth failure

REACTIONS (7)
  - Wrong technique in device usage process [Unknown]
  - Poor quality device used [Unknown]
  - Incorrect dose administered [Unknown]
  - Drug dose omission by device [Unknown]
  - Device leakage [Unknown]
  - Device physical property issue [Unknown]
  - Product prescribing error [Unknown]
